FAERS Safety Report 17134246 (Version 1)
Quarter: 2019Q4

REPORT INFORMATION
  Report Type: Spontaneous
  Country: GB (occurrence: GB)
  Receive Date: 20191210
  Receipt Date: 20191210
  Transmission Date: 20200122
  Serious: Yes (Disabling)
  Sender: FDA-Public Use
  Company Number: GB-TEVA-2019-GB-1148353

PATIENT
  Age: 68 Year
  Sex: Female
  Weight: 60 kg

DRUGS (10)
  1. CARBAMAZEPINE. [Concomitant]
     Active Substance: CARBAMAZEPINE
     Dosage: TAKE ONE DAILY AND BUILD UP GRADUALLY (ONE TWIC...
     Dates: start: 20191028
  2. FEXOFENADINE [Concomitant]
     Active Substance: FEXOFENADINE HYDROCHLORIDE
     Dosage: MORNING AND MID-DAY , 2 DOSAGE FORMS 1 DAYS
     Dates: start: 20190926, end: 20191024
  3. MONTELUKAST [Suspect]
     Active Substance: MONTELUKAST SODIUM
     Dosage: AT NIGHT , 10 MG 1 DAYS
     Dates: start: 20190926, end: 20191024
  4. GAVISCON ADVANCE [Concomitant]
     Active Substance: POTASSIUM BICARBONATE\SODIUM ALGINATE
     Dosage: 5ML OR 10ML 4 TIMES/DAY
     Dates: start: 20180611
  5. CHLORPROMAZINE. [Concomitant]
     Active Substance: CHLORPROMAZINE
     Dosage: HALF OR ONE TABLET AT NIGHT BEFORE BED
     Dates: start: 20180611
  6. CYANOCOBALAMIN. [Concomitant]
     Active Substance: CYANOCOBALAMIN
     Dosage: 1 DOSAGE FORMS 1 DAYS
     Dates: start: 20171102, end: 20191028
  7. HYDROXYZINE [Concomitant]
     Active Substance: HYDROXYZINE HYDROCHLORIDE
     Dosage: TAKE ONE OR TWO AT NIGHT FOR 1 MONTH
     Dates: start: 20190926, end: 20191024
  8. ZOPICLONE [Concomitant]
     Active Substance: ZOPICLONE
     Dosage: AT NIGHT , 1 DOSAGE FORMS 1 DAY
     Dates: start: 20160930
  9. EXEMESTANE. [Concomitant]
     Active Substance: EXEMESTANE
     Dosage: 1 DOSAGE FORMS 1 DAYS
     Dates: start: 20180416
  10. LANSOPRAZOLE. [Concomitant]
     Active Substance: LANSOPRAZOLE
     Dosage: ONCE DAILY , 1 DOSAGE FORMS 1 DAYS
     Dates: start: 20191009

REACTIONS (2)
  - Mood altered [Recovered/Resolved]
  - Abnormal dreams [Recovered/Resolved]

NARRATIVE: CASE EVENT DATE: 20191104
